FAERS Safety Report 16583691 (Version 1)
Quarter: 2019Q3

REPORT INFORMATION
  Report Type: Spontaneous
  Country: TW (occurrence: TW)
  Receive Date: 20190717
  Receipt Date: 20190717
  Transmission Date: 20191004
  Serious: Yes (Other)
  Sender: FDA-Public Use
  Company Number: TW-AMGEN-TWNSP2019113394

PATIENT
  Age: 66 Year
  Sex: Male

DRUGS (1)
  1. ENBREL [Suspect]
     Active Substance: ETANERCEPT
     Indication: ANKYLOSING SPONDYLITIS
     Dosage: 25 MILLIGRAM, 2 TIMES/WK
     Route: 058
     Dates: start: 20160428

REACTIONS (3)
  - Adenocarcinoma [Not Recovered/Not Resolved]
  - Prostate cancer [Not Recovered/Not Resolved]
  - Haematuria [Not Recovered/Not Resolved]
